FAERS Safety Report 7916687-2 (Version None)
Quarter: 2011Q4

REPORT INFORMATION
  Report Type: 
  Country: None (occurrence: None)
  Receive Date: 20111107
  Receipt Date: 20111031
  Transmission Date: 20120403
  Serious: Yes (Other)
  Sender: FDA-Public Use
  Company Number: 2011030096

PATIENT
  Sex: Female
  Weight: 142.8831 kg

DRUGS (20)
  1. VICODIN [Concomitant]
  2. GABAPENTIN [Concomitant]
  3. CARTIA XT [Concomitant]
  4. SYNTHROID [Concomitant]
  5. METFORMIN HCL [Concomitant]
  6. ALBUTEROL HFA (SALBUTAMOL) [Concomitant]
  7. XANAX [Concomitant]
  8. FLONASE [Concomitant]
  9. SUPARTZ  (HYALURONATE SODIUM) [Concomitant]
  10. FLEXERIL [Concomitant]
  11. ATROVENT [Concomitant]
  12. CORTISONE ACETATE [Concomitant]
  13. LASIX [Concomitant]
  14. ADVAIR HFA [Concomitant]
  15. HIZENTRA [Suspect]
     Indication: IMMUNODEFICIENCY
     Dosage: (SUBCUTANEOUS), (20 G 1X/WEEK, (100 ML) 4-6 SITES OVER 1-2 HOURS SUBCUTANEOUS)
     Route: 058
     Dates: start: 20110525
  16. HIZENTRA [Suspect]
     Indication: HYPOGAMMAGLOBULINAEMIA
     Dosage: (SUBCUTANEOUS), (20 G 1X/WEEK, (100 ML) 4-6 SITES OVER 1-2 HOURS SUBCUTANEOUS)
     Route: 058
     Dates: start: 20110525
  17. HIZENTRA [Suspect]
     Indication: IMMUNODEFICIENCY
     Dosage: (SUBCUTANEOUS), (20 G 1X/WEEK, (100 ML) 4-6 SITES OVER 1-2 HOURS SUBCUTANEOUS)
     Route: 058
     Dates: start: 20110914
  18. HIZENTRA [Suspect]
     Indication: HYPOGAMMAGLOBULINAEMIA
     Dosage: (SUBCUTANEOUS), (20 G 1X/WEEK, (100 ML) 4-6 SITES OVER 1-2 HOURS SUBCUTANEOUS)
     Route: 058
     Dates: start: 20110914
  19. SINGULAIR [Concomitant]
  20. INDOMETHACIN [Concomitant]

REACTIONS (4)
  - SERUM SICKNESS [None]
  - BLOOD GLUCOSE INCREASED [None]
  - PLATELET COUNT INCREASED [None]
  - MULTI-ORGAN FAILURE [None]
